FAERS Safety Report 4492685-9 (Version None)
Quarter: 2004Q4

REPORT INFORMATION
  Report Type: 
  Country: None (occurrence: None)
  Receive Date: 20041029
  Receipt Date: 20041019
  Transmission Date: 20050328
  Serious: Yes (Hospitalization)
  Sender: FDA-Public Use
  Company Number: 2004080055

PATIENT
  Age: 68 Year
  Sex: Female

DRUGS (2)
  1. CETIRIZINE HCL [Suspect]
     Indication: PRURITUS
  2. CLARITHROMYCIN [Suspect]
     Indication: ILL-DEFINED DISORDER

REACTIONS (1)
  - ERYTHEMA MULTIFORME [None]
